FAERS Safety Report 7557444-9 (Version None)
Quarter: 2011Q2

REPORT INFORMATION
  Report Type: 
  Country: None (occurrence: None)
  Receive Date: 20110616
  Receipt Date: 20110616
  Transmission Date: 20111010
  Serious: No
  Sender: FDA-Public Use
  Company Number: None

PATIENT
  Age: 67 Year
  Sex: Female
  Weight: 65.318 kg

DRUGS (2)
  1. HALDOL [Suspect]
     Indication: AGITATION
     Dosage: 200MG ONCE PER MONTH IM  USED X 2
     Route: 030
     Dates: start: 20101120, end: 20101222
  2. HALDOL [Suspect]
     Indication: DEMENTIA
     Dosage: 200MG ONCE PER MONTH IM  USED X 2
     Route: 030
     Dates: start: 20101120, end: 20101222

REACTIONS (7)
  - THROMBOSIS [None]
  - ATRIAL FIBRILLATION [None]
  - POSTURE ABNORMAL [None]
  - SEDATION [None]
  - INCONTINENCE [None]
  - GAIT DISTURBANCE [None]
  - ACTIVITIES OF DAILY LIVING IMPAIRED [None]
